FAERS Safety Report 13744222 (Version 1)
Quarter: 2017Q3

REPORT INFORMATION
  Report Type: Spontaneous
  Country: FR (occurrence: FR)
  Receive Date: 20170712
  Receipt Date: 20170712
  Transmission Date: 20171127
  Serious: Yes (Hospitalization, Other)
  Sender: FDA-Public Use
  Company Number: FR-ROCHE-1960267

PATIENT
  Sex: Male
  Weight: 94 kg

DRUGS (14)
  1. KEPPRA [Suspect]
     Active Substance: LEVETIRACETAM
     Indication: NEUROSARCOIDOSIS
     Dosage: CURRENTLY ONGOING
     Route: 048
     Dates: start: 2004
  2. PREVISCAN (FRANCE) [Suspect]
     Active Substance: FLUINDIONE
     Indication: NEUROSARCOIDOSIS
     Dosage: CURRENTLY ONGOING
     Route: 048
     Dates: start: 2004
  3. HUMIRA [Suspect]
     Active Substance: ADALIMUMAB
     Indication: NEUROSARCOIDOSIS
     Dosage: CURRENTLY ONGOING
     Route: 058
  4. CELLCEPT [Suspect]
     Active Substance: MYCOPHENOLATE MOFETIL\MYCOPHENOLATE MOFETIL HYDROCHLORIDE
     Indication: LYMPHOCYTOSIS
  5. REMICADE [Suspect]
     Active Substance: INFLIXIMAB
     Indication: NEUROSARCOIDOSIS
     Route: 065
     Dates: start: 2004, end: 2016
  6. METOTREXATE [Suspect]
     Active Substance: METHOTREXATE SODIUM
     Indication: NEUROSARCOIDOSIS
     Route: 030
     Dates: start: 2005, end: 2016
  7. CELLCEPT [Suspect]
     Active Substance: MYCOPHENOLATE MOFETIL\MYCOPHENOLATE MOFETIL HYDROCHLORIDE
     Indication: NEUROSARCOIDOSIS
     Dosage: CURRENTLY ONGOING
     Route: 048
     Dates: start: 2004
  8. CORTISONE [Suspect]
     Active Substance: CORTISONE\HYDROCORTISONE
     Indication: LYMPHOCYTOSIS
  9. PREVISCAN (FRANCE) [Suspect]
     Active Substance: FLUINDIONE
     Indication: LYMPHOCYTOSIS
  10. METOTREXATE [Suspect]
     Active Substance: METHOTREXATE SODIUM
     Indication: LYMPHOCYTOSIS
  11. KEPPRA [Suspect]
     Active Substance: LEVETIRACETAM
     Indication: LYMPHOCYTOSIS
  12. CORTISONE [Suspect]
     Active Substance: CORTISONE\HYDROCORTISONE
     Indication: NEUROSARCOIDOSIS
     Dosage: CURRENTLY ONGOING
     Route: 048
     Dates: start: 2004
  13. HUMIRA [Suspect]
     Active Substance: ADALIMUMAB
     Indication: LYMPHOCYTOSIS
  14. REMICADE [Suspect]
     Active Substance: INFLIXIMAB
     Indication: LYMPHOCYTOSIS

REACTIONS (7)
  - Intentional product use issue [Unknown]
  - Amnesia [Recovered/Resolved]
  - Cerebrovascular accident [Recovered/Resolved]
  - Epilepsy [Recovered/Resolved]
  - Balance disorder [Recovering/Resolving]
  - Liver disorder [Recovered/Resolved]
  - Off label use [Unknown]

NARRATIVE: CASE EVENT DATE: 2004
